FAERS Safety Report 5113444-X (Version None)
Quarter: 2006Q3

REPORT INFORMATION
  Report Type: 
  Country: None (occurrence: None)
  Receive Date: 20060920
  Receipt Date: 20060908
  Transmission Date: 20061208
  Serious: Yes (Death)
  Sender: FDA-Public Use
  Company Number: A-CH2006-12494

PATIENT
  Age: 76 Year
  Sex: Male
  Weight: 73 kg

DRUGS (13)
  1. TRACLEER [Suspect]
     Indication: PULMONARY HYPERTENSION
     Dosage: SEE IMAGE
     Route: 048
     Dates: start: 20060518, end: 20060608
  2. TRACLEER [Suspect]
     Indication: PULMONARY HYPERTENSION
     Dosage: SEE IMAGE
     Route: 048
     Dates: start: 20060609, end: 20060619
  3. SIMVASTATIN [Concomitant]
  4. PREDNISONE TAB [Concomitant]
  5. LANOXIN [Concomitant]
  6. ISOSORBIDE (ISOSORBIDE) [Concomitant]
  7. ASPIRIN [Concomitant]
  8. ACENOCOUMAROL (ACENOCOUMAROL) [Concomitant]
  9. BUMETANIDE [Concomitant]
  10. PANTOZOL (PANTOPRAZOLE SODIUM) [Concomitant]
  11. CALCICHEW (CALCIUM CARBONATE) [Concomitant]
  12. SERETIDE (SALMETEROL, FLUTICASONE PROPIONATE) [Concomitant]
  13. ATROVENT [Concomitant]

REACTIONS (5)
  - ARTERIOSCLEROSIS CORONARY ARTERY [None]
  - BLOOD BILIRUBIN INCREASED [None]
  - BRAIN NATRIURETIC PEPTIDE INCREASED [None]
  - VENTRICULAR ARRHYTHMIA [None]
  - VENTRICULAR FIBRILLATION [None]
